FAERS Safety Report 5255281-1 (Version None)
Quarter: 2007Q1

REPORT INFORMATION
  Report Type: 
  Country: None (occurrence: None)
  Receive Date: 20070305
  Receipt Date: 20070222
  Transmission Date: 20070707
  Serious: Yes (Hospitalization)
  Sender: FDA-Public Use
  Company Number: JP-ROCHE-483453

PATIENT
  Age: 3 Year
  Sex: Male
  Weight: 16 kg

DRUGS (1)
  1. ROCEPHIN [Suspect]
     Indication: SEPSIS
     Dosage: ROUTE REPORTED AS INTRAVENOUS (NOT OTHERWISE SPECIFIED).
     Route: 042

REACTIONS (2)
  - CHOLELITHIASIS [None]
  - HEPATIC FUNCTION ABNORMAL [None]
